FAERS Safety Report 4534242-1 (Version None)
Quarter: 2004Q4

REPORT INFORMATION
  Report Type: 
  Country: None (occurrence: None)
  Receive Date: 20041222
  Receipt Date: 20041216
  Transmission Date: 20050328
  Serious: Yes (Hospitalization)
  Sender: FDA-Public Use
  Company Number: JP-BRISTOL-MYERS SQUIBB COMPANY-12798229

PATIENT
  Sex: Female

DRUGS (2)
  1. TAXOL [Suspect]
     Indication: BREAST CANCER
     Route: 042
  2. HERCEPTIN [Suspect]
     Indication: BREAST CANCER
     Route: 042

REACTIONS (1)
  - PULMONARY OEDEMA [None]
